FAERS Safety Report 8847992 (Version 1)
Quarter: 2012Q4

REPORT INFORMATION
  Report Type: 
  Country: LB (occurrence: LB)
  Receive Date: 20121018
  Receipt Date: 20121018
  Transmission Date: 20130627
  Serious: Yes (Other)
  Sender: FDA-Public Use
  Company Number: LB-ASTRAZENECA-2012SE77737

PATIENT
  Age: 45 Year
  Sex: Male

DRUGS (3)
  1. PULMICORT [Suspect]
     Indication: COUGH
     Dosage: 0.5 MG/ML, 3 TIMES A DAY
     Route: 055
     Dates: start: 20120905, end: 20120911
  2. PULMICORT [Suspect]
     Indication: WHEEZING
     Dosage: 0.5 MG/ML, 3 TIMES A DAY
     Route: 055
     Dates: start: 20120905, end: 20120911
  3. COMBIVENT [Concomitant]

REACTIONS (4)
  - Urinary retention [Unknown]
  - Muscular weakness [Unknown]
  - Muscular weakness [Unknown]
  - Pneumonia [Unknown]
